FAERS Safety Report 5535451-5 (Version None)
Quarter: 2007Q4

REPORT INFORMATION
  Report Type: 
  Country: None (occurrence: None)
  Receive Date: 20071206
  Receipt Date: 20071122
  Transmission Date: 20080405
  Serious: Yes (Hospitalization)
  Sender: FDA-Public Use
  Company Number: GB-AMGEN-US251933

PATIENT
  Sex: Female
  Weight: 94 kg

DRUGS (17)
  1. ENBREL [Suspect]
     Indication: RHEUMATOID ARTHRITIS
     Route: 058
     Dates: start: 20021028
  2. ALENDRONATE SODIUM [Concomitant]
     Dosage: UNKNOWN
     Route: 065
  3. AMLODIPINE [Concomitant]
     Dosage: UNKNOWN
     Route: 065
  4. AMLODIPINE [Concomitant]
     Dosage: UNKNOWN
  5. ATENOLOL [Concomitant]
     Dosage: UNKNOWN
     Route: 065
  6. FUROSEMIDE [Concomitant]
     Dosage: UNKNOWN
     Route: 065
  7. ROFECOXIB [Concomitant]
     Dosage: UNKNOWN
     Route: 065
  8. AMITRIPTLINE HCL [Concomitant]
     Dosage: UNKNOWN
     Route: 065
  9. DIAZEPAM [Concomitant]
     Dosage: UNKNOWN
     Route: 065
  10. PARACETAMOL [Concomitant]
     Dosage: UNKNOWN
     Route: 065
  11. CALCIUM [Concomitant]
     Dosage: UNKNOWN
     Route: 065
  12. RALOXIFENE HCL [Concomitant]
     Dosage: UNKNOWN
     Route: 065
  13. FERROUS SULFATE TAB [Concomitant]
     Dosage: UNKNOWN
     Route: 065
  14. BENDROFLUAZIDE [Concomitant]
     Dosage: UNKNOWN
     Route: 065
  15. PERINDOPRIL [Concomitant]
     Dosage: UNKNOWN
     Route: 065
  16. PREGABALIN [Concomitant]
     Dosage: UNKNOWN
     Route: 065
  17. PREDNISOLONE [Concomitant]
     Route: 065

REACTIONS (5)
  - BACILLUS INFECTION [None]
  - CONTUSION [None]
  - DRUG DOSE OMISSION [None]
  - FALL [None]
  - LOWER RESPIRATORY TRACT INFECTION [None]
